FAERS Safety Report 8401211-0 (Version None)
Quarter: 2012Q2

REPORT INFORMATION
  Report Type: 
  Country: None (occurrence: None)
  Receive Date: 20120601
  Receipt Date: 20120525
  Transmission Date: 20120825
  Serious: Yes (Other)
  Sender: FDA-Public Use
  Company Number: PHHY2012NO043914

PATIENT
  Sex: Male

DRUGS (6)
  1. RITALIN [Suspect]
     Dosage: 40 MG
  2. RITALIN [Suspect]
     Dosage: 30 MG
  3. RITALIN [Suspect]
     Dosage: 20 MG
  4. RITALIN [Suspect]
     Dosage: 20 MG
  5. RITALIN [Suspect]
     Dosage: 20 MG
  6. RITALIN [Suspect]
     Dosage: 10 MG

REACTIONS (5)
  - IRRITABILITY [None]
  - PHARYNGEAL OEDEMA [None]
  - HYPERSENSITIVITY [None]
  - MOOD ALTERED [None]
  - AGITATION [None]
